FAERS Safety Report 9262156 (Version 2)
Quarter: 2013Q2

REPORT INFORMATION
  Report Type: Spontaneous
  Country: US (occurrence: US)
  Receive Date: 20130430
  Receipt Date: 20130531
  Transmission Date: 20140414
  Serious: Yes (Hospitalization)
  Sender: FDA-Public Use
  Company Number: US-009507513-1304USA016599

PATIENT
  Sex: Female

DRUGS (1)
  1. SYLATRON [Suspect]

REACTIONS (1)
  - Hospitalisation [Unknown]
